FAERS Safety Report 6936455-8 (Version None)
Quarter: 2010Q3

REPORT INFORMATION
  Report Type: 
  Country: None (occurrence: None)
  Receive Date: 20100818
  Receipt Date: 20100807
  Transmission Date: 20110219
  Serious: Yes (Life-Threatening, Other)
  Sender: FDA-Public Use
  Company Number: IPC201008-000244

PATIENT
  Age: 56 Year
  Sex: Male

DRUGS (2)
  1. METOCLOPRAMIDE HYDROCHLORIDE [Suspect]
     Indication: POSTOPERATIVE ILEUS
     Dosage: 20 MG, EVERY 6 HOURS, INTRAVENOUSLY, INTRAVENOUS
     Route: 042
  2. DIGOXIN [Suspect]
     Indication: ATRIAL FIBRILLATION

REACTIONS (6)
  - ATRIAL FIBRILLATION [None]
  - BRADYCARDIA [None]
  - CARDIAC ARREST [None]
  - DRUG INTERACTION [None]
  - NODAL RHYTHM [None]
  - SINUS TACHYCARDIA [None]
